FAERS Safety Report 4655814-X (Version None)
Quarter: 2005Q2

REPORT INFORMATION
  Report Type: 
  Country: None (occurrence: None)
  Receive Date: 20050506
  Receipt Date: 20050506
  Transmission Date: 20051028
  Serious: No
  Sender: FDA-Public Use
  Company Number: None

PATIENT
  Age: 35 Year
  Sex: Female
  Weight: 78.9259 kg

DRUGS (2)
  1. DILANTIN [Suspect]
     Dosage: AM 3 CAPS  500 MGM/DAY; PM 2 CAPS
     Route: 048
  2. VALPROIC ACID [Concomitant]

REACTIONS (3)
  - CONVULSION [None]
  - DISEASE RECURRENCE [None]
  - PHARMACEUTICAL PRODUCT COMPLAINT [None]
